FAERS Safety Report 9125005 (Version 1)
Quarter: 2013Q1

REPORT INFORMATION
  Report Type: Spontaneous
  Country: US (occurrence: US)
  Receive Date: 20130117
  Receipt Date: 20130117
  Transmission Date: 20140127
  Serious: No
  Sender: FDA-Public Use
  Company Number: US-PFIZER INC-2013018729

PATIENT
  Age: 48 Year
  Sex: Female
  Weight: 117.91 kg

DRUGS (4)
  1. TOVIAZ [Suspect]
     Dosage: UNK
  2. RELPAX [Suspect]
     Indication: MIGRAINE
     Dosage: 40 MG, AS NEEDED
     Route: 048
  3. CYMBALTA [Concomitant]
     Indication: DEPRESSION
     Dosage: UNK
  4. TOPAMAX [Concomitant]
     Dosage: UNK

REACTIONS (2)
  - Headache [Unknown]
  - Dry mouth [Unknown]
